FAERS Safety Report 4458989-0 (Version None)
Quarter: 2004Q3

REPORT INFORMATION
  Report Type: 
  Country: None (occurrence: None)
  Receive Date: 20040923
  Receipt Date: 20040923
  Transmission Date: 20050211
  Serious: No
  Sender: FDA-Public Use
  Company Number: None

PATIENT
  Age: 56 Year
  Sex: Male

DRUGS (3)
  1. PHENYTOIN [Suspect]
     Indication: CONVULSION
     Dosage: 100 MG PO QID
     Route: 048
     Dates: start: 20040909
  2. PHENYTOIN [Suspect]
     Indication: DEPRESSION
     Dosage: 100 MG PO QID
     Route: 048
     Dates: start: 20040909
  3. PHENYTOIN [Suspect]
     Indication: HYPERSENSITIVITY
     Dosage: 100 MG PO QID
     Route: 048
     Dates: start: 20040909

REACTIONS (1)
  - URTICARIA [None]
